FAERS Safety Report 24934558 (Version 1)
Quarter: 2025Q1

REPORT INFORMATION
  Report Type: Spontaneous
  Country: BE (occurrence: BE)
  Receive Date: 20250206
  Receipt Date: 20250206
  Transmission Date: 20250408
  Serious: No
  Sender: EXELIXIS
  Company Number: BE-IPSEN Group, Research and Development-2024-20085

PATIENT
  Age: 60 Year
  Sex: Male
  Weight: 92 kg

DRUGS (2)
  1. CABOMETYX [Suspect]
     Active Substance: CABOZANTINIB S-MALATE
     Indication: Hepatocellular carcinoma
     Route: 048
     Dates: start: 20240612
  2. CABOMETYX [Suspect]
     Active Substance: CABOZANTINIB S-MALATE
     Route: 048

REACTIONS (3)
  - Skin toxicity [Recovered/Resolved]
  - Blister [Recovered/Resolved]
  - Blood bilirubin increased [Unknown]

NARRATIVE: CASE EVENT DATE: 20240705
